FAERS Safety Report 24232027 (Version 1)
Quarter: 2024Q3

REPORT INFORMATION
  Report Type: Spontaneous
  Country: GB (occurrence: GB)
  Receive Date: 20240821
  Receipt Date: 20240821
  Transmission Date: 20241017
  Serious: Yes (Other)
  Sender: STRIDES
  Company Number: GB-STRIDES ARCOLAB LIMITED-2024SP010390

PATIENT

DRUGS (6)
  1. PREDNISOLONE [Suspect]
     Active Substance: PREDNISOLONE
     Indication: Nephrotic syndrome
     Dosage: UNK
     Route: 048
  2. TACROLIMUS [Suspect]
     Active Substance: TACROLIMUS
     Indication: Nephrotic syndrome
     Dosage: UNK
     Route: 065
  3. MYCOPHENOLATE MOFETIL [Suspect]
     Active Substance: MYCOPHENOLATE MOFETIL
     Indication: Nephrotic syndrome
     Dosage: UNK
     Route: 065
  4. METHYLPREDNISOLONE [Suspect]
     Active Substance: METHYLPREDNISOLONE
     Indication: Nephrotic syndrome
     Dosage: UNK
     Route: 042
  5. CYCLOPHOSPHAMIDE [Suspect]
     Active Substance: CYCLOPHOSPHAMIDE
     Indication: Nephrotic syndrome
     Dosage: UNK
     Route: 048
  6. LEVAMISOLE [Suspect]
     Active Substance: LEVAMISOLE
     Indication: Nephrotic syndrome
     Dosage: UNK
     Route: 065

REACTIONS (4)
  - Atrial thrombosis [Unknown]
  - Device related sepsis [Unknown]
  - Drug resistance [Unknown]
  - Off label use [Unknown]
